FAERS Safety Report 9420577 (Version 1)
Quarter: 2013Q3

REPORT INFORMATION
  Report Type: Spontaneous
  Country: US (occurrence: US)
  Receive Date: 20130725
  Receipt Date: 20130725
  Transmission Date: 20140515
  Serious: No
  Sender: FDA-Public Use
  Company Number: US-ABBOTT-13P-163-1107488-00

PATIENT
  Sex: Female
  Weight: 108.96 kg

DRUGS (11)
  1. SYNTHROID [Suspect]
     Indication: HYPOTHYROIDISM
     Dosage: 200MCG DAILY
     Dates: start: 1999
  2. PROVERA [Concomitant]
     Indication: HORMONE REPLACEMENT THERAPY
  3. ESTRADIOL [Concomitant]
     Indication: HORMONE REPLACEMENT THERAPY
  4. CLARITIN [Concomitant]
     Indication: SINUS DISORDER
  5. MICARDIS [Concomitant]
     Indication: BLOOD PRESSURE
  6. NEXIUM [Concomitant]
     Indication: GASTROOESOPHAGEAL REFLUX DISEASE
  7. TOPAMAX [Concomitant]
     Indication: MIGRAINE
  8. CELEXA [Concomitant]
     Indication: ANTIDEPRESSANT THERAPY
  9. AMBIEN [Concomitant]
     Indication: INSOMNIA
  10. ATIVAN [Concomitant]
     Indication: ANXIETY
  11. SOMA [Concomitant]
     Indication: BACK PAIN

REACTIONS (5)
  - Amnesia [Not Recovered/Not Resolved]
  - Amnesia [Not Recovered/Not Resolved]
  - Migraine [Not Recovered/Not Resolved]
  - Intervertebral disc protrusion [Not Recovered/Not Resolved]
  - Spondylolisthesis [Not Recovered/Not Resolved]
